FAERS Safety Report 14825766 (Version 2)
Quarter: 2018Q3

REPORT INFORMATION
  Report Type: Spontaneous
  Country: JP (occurrence: JP)
  Receive Date: 20180430
  Receipt Date: 20180727
  Transmission Date: 20181010
  Serious: Yes (Other)
  Sender: FDA-Public Use
  Company Number: JP-BRISTOL-MYERS SQUIBB COMPANY-BMS-2018-032530

PATIENT
  Age: 79 Year
  Sex: Male

DRUGS (1)
  1. NIVOLUMAB [Suspect]
     Active Substance: NIVOLUMAB
     Indication: METASTATIC RENAL CELL CARCINOMA
     Dosage: UNK
     Route: 042

REACTIONS (8)
  - Pyrexia [Unknown]
  - Inflammation [Unknown]
  - Liver function test increased [Unknown]
  - Decreased appetite [Unknown]
  - Malaise [Unknown]
  - Dysphagia [Unknown]
  - Enteritis infectious [Unknown]
  - Hallucination [Unknown]
